FAERS Safety Report 17762461 (Version 1)
Quarter: 2020Q2

REPORT INFORMATION
  Report Type: Spontaneous
  Country: BE (occurrence: BE)
  Receive Date: 20200508
  Receipt Date: 20200508
  Transmission Date: 20200714
  Serious: Yes (Other)
  Sender: FDA-Public Use
  Company Number: BE-PFIZER INC-2020178548

PATIENT
  Age: 67 Year
  Sex: Male

DRUGS (5)
  1. CASPOFUNGIN [Concomitant]
     Active Substance: CASPOFUNGIN
     Indication: BRONCHOPULMONARY ASPERGILLOSIS
     Dosage: 50 MG
     Route: 042
  2. CASPOFUNGIN [Concomitant]
     Active Substance: CASPOFUNGIN
     Indication: BRONCHOPULMONARY ASPERGILLOSIS
     Dosage: 70MG ON FIRST DAY; THEN 50MG THEREAFTER
  3. METHYLPREDNISOLONE. [Suspect]
     Active Substance: METHYLPREDNISOLONE
     Indication: HEPATITIS ALCOHOLIC
     Dosage: 32 MG, 1X/DAY
  4. AMPHOTERICIN B. [Concomitant]
     Active Substance: AMPHOTERICIN B
     Indication: BRONCHOPULMONARY ASPERGILLOSIS
     Dosage: 5 MG/KG, 1X/DAY
     Route: 042
  5. AMOXICILLIN/CLAVULANIC ACID [Concomitant]
     Active Substance: AMOXICILLIN\CLAVULANIC ACID
     Indication: COUGH
     Dosage: UNK

REACTIONS (6)
  - Tracheobronchitis [Recovered/Resolved]
  - Cough [Recovered/Resolved]
  - Sputum discoloured [Recovered/Resolved]
  - Product use in unapproved indication [Unknown]
  - Bronchopulmonary aspergillosis [Recovered/Resolved]
  - Off label use [Unknown]
